FAERS Safety Report 20864584 (Version 2)
Quarter: 2022Q2

REPORT INFORMATION
  Report Type: Other
  Country: US (occurrence: None)
  Receive Date: 20220524
  Receipt Date: 20220525
  Transmission Date: 20220721
  Serious: No
  Sender: FDA-Public Use
  Company Number: US-ROCHE-3102416

PATIENT
  Age: 55 Year
  Sex: Female
  Weight: 69.916 kg

DRUGS (1)
  1. OCREVUS [Suspect]
     Active Substance: OCRELIZUMAB
     Indication: Secondary progressive multiple sclerosis
     Dosage: ONGOING-YES; DATE OF TREATMENT: 15/MAR/2022, 03/AUG/2021, 16/FEB/2021, 13/AUG/2020, 25/FEB/2020, 11/
     Route: 042
     Dates: start: 202002

REACTIONS (3)
  - Herpes zoster [Recovered/Resolved]
  - Pruritus [Not Recovered/Not Resolved]
  - Scab [Not Recovered/Not Resolved]

NARRATIVE: CASE EVENT DATE: 20220401
